FAERS Safety Report 7249610-7 (Version None)
Quarter: 2011Q1

REPORT INFORMATION
  Report Type: 
  Country: None (occurrence: None)
  Receive Date: 20110128
  Receipt Date: 20101227
  Transmission Date: 20110831
  Serious: Yes (Other)
  Sender: FDA-Public Use
  Company Number: US-BAYER-200923785NA

PATIENT
  Sex: Male
  Weight: 72 kg

DRUGS (26)
  1. GASTROGRAFIN [Concomitant]
     Indication: COMPUTERISED TOMOGRAM ABDOMEN
     Dosage: 30 UNK, UNK
     Dates: start: 20030523, end: 20030523
  2. NAPROXEN [Concomitant]
     Dates: start: 20030211
  3. MUPIROCIN [Concomitant]
     Dosage: ONE APPLICATION DAILY
     Dates: start: 20030108
  4. FENTANYL [Concomitant]
     Dosage: 75 MG
  5. MAGNEVIST [Suspect]
     Indication: NUCLEAR MAGNETIC RESONANCE IMAGING BRAIN
     Dates: start: 20040427, end: 20040427
  6. MAGNEVIST [Suspect]
     Indication: NUCLEAR MAGNETIC RESONANCE IMAGING ABDOMINAL
     Dates: start: 20041011, end: 20041011
  7. ISOVUE-128 [Concomitant]
     Indication: COMPUTERISED TOMOGRAM ABDOMEN
     Dosage: 100 ML, ONCE
     Dates: start: 20040422, end: 20040422
  8. VENOFER [Concomitant]
     Dosage: 200 MG PRN
     Dates: start: 20031215
  9. MEDRONATE DISODIUM [Concomitant]
     Indication: BONE SCAN
     Dosage: 25 MCI, UNK
     Dates: start: 20050413, end: 20050413
  10. OPTIMARK [Suspect]
     Indication: NUCLEAR MAGNETIC RESONANCE IMAGING
  11. OPTIRAY 350 [Concomitant]
     Dates: start: 20030110, end: 20030110
  12. DOXERCALCIFEROL [Concomitant]
     Dates: start: 20021002
  13. MEGACE [Concomitant]
  14. RENAGEL [Concomitant]
     Indication: HYPERPHOSPHATAEMIA
  15. OMNISCAN [Suspect]
     Indication: NUCLEAR MAGNETIC RESONANCE IMAGING
  16. OPTIRAY 350 [Concomitant]
     Dates: start: 20040525, end: 20040525
  17. MULTIHANCE [Suspect]
     Indication: BRAIN NEOPLASM
  18. OPTIRAY 350 [Concomitant]
     Dates: start: 20060703, end: 20060703
  19. VISIPAQUE [IODINE,IODIXANOL] [Concomitant]
     Indication: ARTERIOGRAM
     Dosage: 70 ML, ONCE
     Dates: start: 20090416, end: 20090416
  20. EPOETIN ALFA [Concomitant]
     Indication: NUCLEAR MAGNETIC RESONANCE IMAGING
     Dosage: 10,000 UNITS Q HD
     Dates: start: 20030528
  21. ASA [Concomitant]
     Indication: PERIPHERAL ARTERIAL OCCLUSIVE DISEASE
  22. MAGNEVIST [Suspect]
     Indication: BRAIN NEOPLASM
     Dates: start: 20040611, end: 20040611
  23. PROHANCE [Suspect]
     Indication: NUCLEAR MAGNETIC RESONANCE IMAGING
  24. OPTIRAY 350 [Concomitant]
     Dates: start: 20040922, end: 20040922
  25. OPTIRAY 350 [Concomitant]
     Dates: start: 20050323, end: 20050323
  26. AMLODIPINE [Concomitant]
     Dosage: 5  MG QOD/ MWF
     Dates: start: 20030219

REACTIONS (23)
  - SCAR [None]
  - SKIN HYPERTROPHY [None]
  - SKIN LESION [None]
  - PARAESTHESIA [None]
  - ARTHRALGIA [None]
  - GENERAL PHYSICAL HEALTH DETERIORATION [None]
  - BONE PAIN [None]
  - ASTHENIA [None]
  - NEPHROGENIC SYSTEMIC FIBROSIS [None]
  - SKIN ULCER [None]
  - SKIN EXFOLIATION [None]
  - MOBILITY DECREASED [None]
  - EXTREMITY CONTRACTURE [None]
  - PAIN IN EXTREMITY [None]
  - HYPOAESTHESIA [None]
  - PAIN [None]
  - OEDEMA PERIPHERAL [None]
  - DEFORMITY [None]
  - SKIN FISSURES [None]
  - SKIN INDURATION [None]
  - PERIPHERAL COLDNESS [None]
  - ESCHAR [None]
  - ARTHROPATHY [None]
